FAERS Safety Report 13395493 (Version 1)
Quarter: 2017Q2

REPORT INFORMATION
  Report Type: Spontaneous
  Country: US (occurrence: US)
  Receive Date: 20170401
  Receipt Date: 20170401
  Transmission Date: 20170830
  Serious: Yes (Disabling, Other)
  Sender: FDA-Public Use
  Company Number: None

PATIENT
  Age: 84 Year
  Sex: Female
  Weight: 45 kg

DRUGS (7)
  1. MORPHINE [Suspect]
     Active Substance: MORPHINE
     Indication: PAIN IN JAW
     Dosage: ?          QUANTITY:1 TABLET(S);?
     Route: 048
     Dates: start: 20170328, end: 20170328
  2. RISPERDONE [Suspect]
     Active Substance: RISPERIDONE
     Indication: AGGRESSION
     Dosage: ?          QUANTITY:1 TABLET(S);?
     Route: 048
     Dates: start: 20170327, end: 20170328
  3. XARELTO [Concomitant]
     Active Substance: RIVAROXABAN
  4. DIOGIN [Concomitant]
  5. SENNA [Concomitant]
     Active Substance: SENNA LEAF\SENNOSIDES\SENNOSIDES A AND B
  6. MIRTAZILINE [Concomitant]
  7. LOSARTIN [Concomitant]
     Active Substance: LOSARTAN

REACTIONS (5)
  - Aphasia [None]
  - Hypersensitivity [None]
  - Blood pressure increased [None]
  - Swelling face [None]
  - Dysarthria [None]

NARRATIVE: CASE EVENT DATE: 20170328
